FAERS Safety Report 21463947 (Version 2)
Quarter: 2022Q4

REPORT INFORMATION
  Report Type: Report from Study
  Country: US (occurrence: None)
  Receive Date: 20221017
  Receipt Date: 20221213
  Transmission Date: 20230113
  Serious: Yes (Other)
  Sender: FDA-Public Use
  Company Number: US-ROCHE-3196626

PATIENT
  Age: 79 Year
  Sex: Male
  Weight: 83 kg

DRUGS (16)
  1. RANIBIZUMAB [Suspect]
     Active Substance: RANIBIZUMAB
     Indication: Neovascular age-related macular degeneration
     Dosage: DOSE OF STUDY DRUG FIRST ADMINISTERED WAS 100 MG/ML?ON 05/OCT/2022, HE RECEIVED THE MOST RECENT DOSE
     Route: 050
     Dates: start: 20201201
  2. RANIBIZUMAB [Suspect]
     Active Substance: RANIBIZUMAB
  3. RANIBIZUMAB [Suspect]
     Active Substance: RANIBIZUMAB
  4. RANIBIZUMAB [Suspect]
     Active Substance: RANIBIZUMAB
  5. RANIBIZUMAB [Suspect]
     Active Substance: RANIBIZUMAB
  6. RANIBIZUMAB [Concomitant]
     Active Substance: RANIBIZUMAB
     Dosage: DOSE OF STUDY DRUG FIRST ADMINISTERED WAS 10 MG/ML?DOSE LAST STUDY DRUG ADMIN PRIOR AE WAS 10 MG/ML
     Route: 050
     Dates: start: 20211102
  7. RANIBIZUMAB [Concomitant]
     Active Substance: RANIBIZUMAB
     Route: 050
     Dates: start: 20221123, end: 20221123
  8. OMEPRAZOLE [Concomitant]
     Active Substance: OMEPRAZOLE
     Indication: Gastrooesophageal reflux disease
  9. METOPROLOL SUCCINATE [Concomitant]
     Active Substance: METOPROLOL SUCCINATE
     Indication: Hypertension
  10. FINASTERIDE [Concomitant]
     Active Substance: FINASTERIDE
  11. DOXAZOSIN [Concomitant]
     Active Substance: DOXAZOSIN MESYLATE
  12. ATORVASTATIN [Concomitant]
     Active Substance: ATORVASTATIN
     Indication: Hypercholesterolaemia
  13. AMITRIPTYLINE [Concomitant]
     Active Substance: AMITRIPTYLINE
     Indication: Depression
  14. ASPIRIN [Concomitant]
     Active Substance: ASPIRIN
     Indication: Coronary artery disease
     Dates: start: 20190131
  15. GABAPENTIN [Concomitant]
     Active Substance: GABAPENTIN
     Indication: Spondylitis
     Route: 048
     Dates: start: 20200511
  16. NAPROXEN [Concomitant]
     Active Substance: NAPROXEN
     Indication: Spondylitis
     Route: 048
     Dates: start: 20200511

REACTIONS (2)
  - Device issue [Unknown]
  - No adverse event [Unknown]

NARRATIVE: CASE EVENT DATE: 20221005
